FAERS Safety Report 21393504 (Version 1)
Quarter: 2022Q3

REPORT INFORMATION
  Report Type: Spontaneous
  Country: US (occurrence: None)
  Receive Date: 20220928
  Receipt Date: 20220928
  Transmission Date: 20221027
  Serious: Yes (Other)
  Sender: FDA-Public Use
  Company Number: None

PATIENT
  Age: 57 Year
  Sex: Male
  Weight: 82.55 kg

DRUGS (1)
  1. LEVOTHYROXINE [Suspect]
     Active Substance: LEVOTHYROXINE

REACTIONS (5)
  - Blood thyroid stimulating hormone increased [None]
  - Blood thyroid stimulating hormone decreased [None]
  - Product substitution issue [None]
  - Therapeutic response changed [None]
  - Incorrect dosage administered [None]
